FAERS Safety Report 10517824 (Version 1)
Quarter: 2014Q4

REPORT INFORMATION
  Report Type: Report from Study
  Country: CN (occurrence: CN)
  Receive Date: 20141015
  Receipt Date: 20141015
  Transmission Date: 20150528
  Serious: Yes (Death, Hospitalization)
  Sender: FDA-Public Use
  Company Number: CN-SA-2014SA140429

PATIENT
  Age: 68 Year
  Sex: Male

DRUGS (20)
  1. OXALIPLATIN. [Suspect]
     Active Substance: OXALIPLATIN
     Indication: METASTATIC GASTRIC CANCER
     Dosage: ON DAY 1; 2-H INFUSION, FOURTH CYCLE
     Route: 042
     Dates: start: 20110629
  2. EPIRUBICIN [Suspect]
     Active Substance: EPIRUBICIN
     Indication: METASTATIC GASTRIC CANCER
     Route: 042
     Dates: start: 20110526
  3. EPIRUBICIN [Suspect]
     Active Substance: EPIRUBICIN
     Indication: METASTATIC GASTRIC CANCER
     Route: 042
     Dates: start: 20110419
  4. EPIRUBICIN [Suspect]
     Active Substance: EPIRUBICIN
     Indication: METASTATIC GASTRIC CANCER
     Dosage: ON DAY 1
     Route: 042
     Dates: start: 20110326
  5. EPIRUBICIN [Suspect]
     Active Substance: EPIRUBICIN
     Indication: METASTATIC GASTRIC CANCER
     Route: 042
     Dates: start: 20110629
  6. FLUOROURACIL. [Suspect]
     Active Substance: FLUOROURACIL
     Indication: METASTATIC GASTRIC CANCER
     Dosage: 120-H CONTINUOUS INFUSION FOR 5 DAYS, EVERY 3 WEEKS
     Route: 042
     Dates: start: 20110526
  7. ANTIEMETICS AND ANTINAUSEANTS [Concomitant]
     Active Substance: UNSPECIFIED INGREDIENT
  8. OXALIPLATIN. [Suspect]
     Active Substance: OXALIPLATIN
     Indication: METASTATIC GASTRIC CANCER
     Dosage: ON DAY 1; 2-H INFUSION, FIRST CYCLE
     Route: 042
     Dates: start: 20110326
  9. OXALIPLATIN. [Suspect]
     Active Substance: OXALIPLATIN
     Indication: METASTATIC GASTRIC CANCER
     Dosage: ON DAY 1; 2-H INFUSION, THIRD CYCLE
     Route: 042
     Dates: start: 20110526
  10. OXALIPLATIN. [Suspect]
     Active Substance: OXALIPLATIN
     Indication: METASTATIC GASTRIC CANCER
     Dosage: ON DAY 1; 2-H INFUSION, FIFTH CYCLE
     Route: 042
     Dates: start: 20110727
  11. EPIRUBICIN [Suspect]
     Active Substance: EPIRUBICIN
     Indication: METASTATIC GASTRIC CANCER
     Route: 042
     Dates: start: 20110727
  12. OXALIPLATIN. [Suspect]
     Active Substance: OXALIPLATIN
     Indication: METASTATIC GASTRIC CANCER
     Dosage: ON DAY 1; 2-H INFUSION, SIXTH CYCLE
     Route: 042
     Dates: start: 20110831
  13. FLUOROURACIL. [Suspect]
     Active Substance: FLUOROURACIL
     Indication: METASTATIC GASTRIC CANCER
     Dosage: 120-H CONTINUOUS INFUSION FOR 5 DAYS, EVERY 3 WEEKS
     Route: 042
     Dates: start: 20110831
  14. ANTIALLERGIC AGENTS, EXCL CORTICOSTEROIDS [Concomitant]
     Active Substance: UNSPECIFIED INGREDIENT
  15. OXALIPLATIN. [Suspect]
     Active Substance: OXALIPLATIN
     Indication: METASTATIC GASTRIC CANCER
     Dosage: ON DAY 1; 2-H INFUSION, SECOND CYCLE
     Route: 042
     Dates: start: 20110419
  16. EPIRUBICIN [Suspect]
     Active Substance: EPIRUBICIN
     Indication: METASTATIC GASTRIC CANCER
     Route: 042
     Dates: start: 20110831
  17. FLUOROURACIL. [Suspect]
     Active Substance: FLUOROURACIL
     Indication: METASTATIC GASTRIC CANCER
     Dosage: 120-H CONTINUOUS INFUSION FOR 5 DAYS, EVERY 3 WEEKS
     Route: 042
     Dates: start: 20110629
  18. FLUOROURACIL. [Suspect]
     Active Substance: FLUOROURACIL
     Indication: METASTATIC GASTRIC CANCER
     Dosage: 120-H CONTINUOUS INFUSION FOR 5 DAYS, EVERY 3 WEEKS
     Route: 042
     Dates: start: 20110326
  19. FLUOROURACIL. [Suspect]
     Active Substance: FLUOROURACIL
     Indication: METASTATIC GASTRIC CANCER
     Dosage: 120-H CONTINUOUS INFUSION FOR 5 DAYS, EVERY 3 WEEKS
     Route: 042
     Dates: start: 20110419
  20. FLUOROURACIL. [Suspect]
     Active Substance: FLUOROURACIL
     Indication: METASTATIC GASTRIC CANCER
     Dosage: 120-H CONTINUOUS INFUSION FOR 5 DAYS, EVERY 3 WEEKS
     Route: 042
     Dates: start: 20110727

REACTIONS (7)
  - Haematochezia [Recovering/Resolving]
  - Platelet count decreased [Recovering/Resolving]
  - Anaemia [Recovering/Resolving]
  - Gastrointestinal haemorrhage [Recovering/Resolving]
  - Death [Fatal]
  - Melaena [Recovering/Resolving]
  - Lethargy [Unknown]

NARRATIVE: CASE EVENT DATE: 20110422
